FAERS Safety Report 11312276 (Version 12)
Quarter: 2021Q3

REPORT INFORMATION
  Report Type: Spontaneous
  Country: US (occurrence: US)
  Receive Date: 20150727
  Receipt Date: 20210727
  Transmission Date: 20211014
  Serious: Yes (Other)
  Sender: FDA-Public Use
  Company Number: US-PFIZER INC-2015243210

PATIENT
  Age: 53 Year
  Sex: Female
  Weight: 49 kg

DRUGS (17)
  1. KETOROLAC [Concomitant]
     Active Substance: KETOROLAC TROMETHAMINE
     Indication: PAIN
     Dosage: 10 MG, 3X/DAY (TAKE 1 TABLET UP TO TI. DO NOT TAKE FOR MORE THAN 5 DAYS IN A ROW)
     Dates: start: 20141028
  2. ADVIL [Concomitant]
     Active Substance: IBUPROFEN
     Dosage: 200 MG, AS NEEDED
     Route: 048
     Dates: start: 20151102
  3. LYRICA [Suspect]
     Active Substance: PREGABALIN
     Indication: TRIGEMINAL NEURALGIA
     Dosage: 75 MG, (THREE TIMES A DAY AND TWO AT BEDTIME)
     Route: 048
     Dates: start: 20150429
  4. TORADOL [Concomitant]
     Active Substance: KETOROLAC TROMETHAMINE
     Indication: PAIN
     Dosage: 10 MG, 3X/DAY (TAKE 1 TABLET UP TO TID UPTO FIVE DAYS IN A ROW)
     Dates: start: 20140828
  5. NABUMETONE. [Concomitant]
     Active Substance: NABUMETONE
     Indication: PAIN
     Dosage: UNK UNK, AS NEEDED
  6. KEPPRA [Concomitant]
     Active Substance: LEVETIRACETAM
     Dosage: UNK
  7. ACETAMINOPHEN W/HYDROCODONE [Concomitant]
     Active Substance: ACETAMINOPHEN\HYDROCODONE
     Dosage: UNK, AS NEEDED  (HYDROCODONE 10 MG?ACETAMINOPHEN 325)
     Route: 048
     Dates: start: 20141028
  8. KETOROLAC [Concomitant]
     Active Substance: KETOROLAC TROMETHAMINE
     Dosage: 10 MG, AS NEEDED (TAKE 1 TABLET UP TO TID DO NOT TAKE FOR MORE THAN 5 DAYS IN A ROW)
     Dates: start: 20160509
  9. LYRICA [Suspect]
     Active Substance: PREGABALIN
     Dosage: 75 MG (QID (FOUR TIMES A DAY); TWO AT BEDTIME)
  10. LYRICA [Suspect]
     Active Substance: PREGABALIN
     Dosage: 375 MG, DAILY (75 MG 3 TIMES A DAY AND 2 CAPS AT BEDTIME)
     Route: 048
  11. TRILEPTAL [Concomitant]
     Active Substance: OXCARBAZEPINE
     Dosage: 300 MG, (TAKE ONE?HALF AT BEDTIME FOR ONE WEEK AND THEN INCREASE TO ONE QHS)
     Dates: start: 20150429
  12. TRILEPTAL [Concomitant]
     Active Substance: OXCARBAZEPINE
     Dosage: 300 MG, (TAKE ONE?HALF AT BEDTIME FOR ONE WEEK AND THEN INCREASE TO ONE QHS)
     Dates: start: 20160509
  13. VALIUM [Concomitant]
     Active Substance: DIAZEPAM
     Dosage: 5 MG, AS NEEDED (TAKE 1 TABLET UP TO 2 TIMES A DAY BY ORAL ROUTE AS NEEDED)
     Route: 048
     Dates: start: 20150424
  14. LYRICA [Suspect]
     Active Substance: PREGABALIN
     Indication: MULTIPLE SCLEROSIS
     Dosage: 75 MG, (THREE TIMES A DAY AND TWO AT BEDTIME)
     Route: 048
     Dates: start: 20161011
  15. LYRICA [Suspect]
     Active Substance: PREGABALIN
     Indication: PARAESTHESIA
     Dosage: 75 MG, 3X/DAY,(THREE TIMES DURING THE DAY AND TWO AT NIGHT)
  16. LYRICA [Suspect]
     Active Substance: PREGABALIN
     Dosage: 75 MG, 2X/DAY (TAKE 1 CAPSULE QID ; TWO AT BEDTIME)
  17. DIAZEPAM. [Concomitant]
     Active Substance: DIAZEPAM
     Indication: PAIN
     Dosage: 5 MG, AS NEEDED  ( TWICE A DAY IF NEEDED)
     Route: 048
     Dates: start: 20160509

REACTIONS (29)
  - Feeling cold [Unknown]
  - Headache [Unknown]
  - Dizziness [Unknown]
  - Muscular weakness [Unknown]
  - Vision blurred [Unknown]
  - Spinal pain [Unknown]
  - Gastroenteritis viral [Unknown]
  - Hyperhidrosis [Unknown]
  - Chest pain [Unknown]
  - Speech disorder [Unknown]
  - Trigeminal neuralgia [Unknown]
  - Arthralgia [Unknown]
  - Fall [Unknown]
  - Condition aggravated [Unknown]
  - Diarrhoea [Recovering/Resolving]
  - Pyrexia [Unknown]
  - Fatigue [Unknown]
  - Decreased appetite [Unknown]
  - Blood pressure increased [Unknown]
  - Dyspnoea [Unknown]
  - Balance disorder [Unknown]
  - Sleep disorder [Unknown]
  - Cytomegalovirus infection reactivation [Unknown]
  - Nausea [Unknown]
  - Myalgia [Unknown]
  - Back pain [Unknown]
  - Pain [Unknown]
  - Loss of consciousness [Unknown]
  - Cough [Unknown]

NARRATIVE: CASE EVENT DATE: 20200304
